FAERS Safety Report 10612120 (Version 1)
Quarter: 2014Q4

REPORT INFORMATION
  Report Type: Spontaneous
  Country: GB (occurrence: GB)
  Receive Date: 20141127
  Receipt Date: 20141127
  Transmission Date: 20150529
  Serious: Yes (Hospitalization, Other)
  Sender: FDA-Public Use
  Company Number: GB-AUROBINDO-AUR-APL-2014-12355

PATIENT
  Age: 59 Year
  Sex: Female
  Weight: 50.6 kg

DRUGS (2)
  1. CEFALEXIN [Suspect]
     Active Substance: CEPHALEXIN
     Indication: LOWER RESPIRATORY TRACT INFECTION
     Dosage: UNK
     Route: 065
  2. PACLITAXEL. [Suspect]
     Active Substance: PACLITAXEL
     Indication: OESOPHAGEAL CARCINOMA
     Dosage: 120 MG, EVERY WEEK (1/1 WEEKS)
     Route: 042
     Dates: start: 20141021

REACTIONS (5)
  - Blood potassium decreased [Unknown]
  - Nausea [Unknown]
  - Diarrhoea [Unknown]
  - Performance status decreased [Unknown]
  - Vomiting [Unknown]

NARRATIVE: CASE EVENT DATE: 20141023
